FAERS Safety Report 10184005 (Version 2)
Quarter: 2014Q2

REPORT INFORMATION
  Report Type: Spontaneous
  Country: US (occurrence: US)
  Receive Date: 20140520
  Receipt Date: 20140606
  Transmission Date: 20141212
  Serious: Yes (Hospitalization)
  Sender: FDA-Public Use
  Company Number: US-GLAXOSMITHKLINE-A1073927A

PATIENT
  Age: 63 Year
  Sex: Female

DRUGS (1)
  1. ADVAIR [Suspect]
     Indication: PRODUCT USED FOR UNKNOWN INDICATION
     Route: 065
     Dates: start: 20110120

REACTIONS (5)
  - Haemorrhage [Unknown]
  - Thrombosis [Unknown]
  - Ulcer haemorrhage [Unknown]
  - Gastric ulcer [Unknown]
  - Pain in extremity [Unknown]
